FAERS Safety Report 24640045 (Version 2)
Quarter: 2025Q2

REPORT INFORMATION
  Report Type: Spontaneous
  Country: US (occurrence: US)
  Receive Date: 20241120
  Receipt Date: 20250607
  Transmission Date: 20250717
  Serious: No
  Sender: COHERUS
  Company Number: US-Coherus Biosciences, Inc.-2024-COH-US000152

PATIENT

DRUGS (3)
  1. UDENYCA [Suspect]
     Active Substance: PEGFILGRASTIM-CBQV
     Indication: Prophylaxis
     Dosage: 6 MG, Q3WEEKS
     Route: 058
     Dates: start: 20240208, end: 20240208
  2. UDENYCA [Suspect]
     Active Substance: PEGFILGRASTIM-CBQV
     Dosage: 6 MG, Q3WEEKS
     Route: 058
     Dates: start: 20240213, end: 20240213
  3. UDENYCA [Suspect]
     Active Substance: PEGFILGRASTIM-CBQV
     Dosage: 6 MG, Q3WEEKS
     Route: 058
     Dates: start: 20240306, end: 20240306

REACTIONS (4)
  - Accidental exposure to product [Unknown]
  - Product quality issue [Unknown]
  - Product dose omission issue [Unknown]
  - No adverse event [Unknown]

NARRATIVE: CASE EVENT DATE: 20240306
